FAERS Safety Report 11202803 (Version 2)
Quarter: 2015Q2

REPORT INFORMATION
  Report Type: Spontaneous
  Country: PT (occurrence: PT)
  Receive Date: 20150619
  Receipt Date: 20150624
  Transmission Date: 20150821
  Serious: Yes (Other)
  Sender: FDA-Public Use
  Company Number: PT-SA-2015SA087129

PATIENT
  Age: 39 Year
  Sex: Female

DRUGS (6)
  1. PARAPLATIN [Suspect]
     Active Substance: CARBOPLATIN
     Indication: INTRADUCTAL PROLIFERATIVE BREAST LESION
     Dosage: FOR SIX CYCLES
     Route: 065
  2. CYCLOPHOSPHAMIDE. [Suspect]
     Active Substance: CYCLOPHOSPHAMIDE
     Indication: INTRADUCTAL PROLIFERATIVE BREAST LESION
     Dosage: FOR 4 CYCLES
     Route: 042
  3. ADRIAMYCIN [Suspect]
     Active Substance: DOXORUBICIN HYDROCHLORIDE
     Indication: INTRADUCTAL PROLIFERATIVE BREAST LESION
     Dosage: GIVEN EVERY 4 WEEKS
     Route: 042
  4. CYCLOPHOSPHAMIDE. [Suspect]
     Active Substance: CYCLOPHOSPHAMIDE
     Indication: INTRADUCTAL PROLIFERATIVE BREAST LESION
     Dosage: FOR 4 CYCLES
     Route: 042
  5. TAXOTERE [Suspect]
     Active Substance: DOCETAXEL
     Indication: INTRADUCTAL PROLIFERATIVE BREAST LESION
     Dosage: FOR 6 CYCLES
     Route: 042
  6. ADRIAMYCIN [Suspect]
     Active Substance: DOXORUBICIN HYDROCHLORIDE
     Indication: INTRADUCTAL PROLIFERATIVE BREAST LESION
     Dosage: GIVEN EVERY 4 WEEKS
     Route: 042

REACTIONS (8)
  - Visual acuity reduced [Recovered/Resolved]
  - Retinal deposits [Recovered/Resolved]
  - Blindness [Recovered/Resolved]
  - Macular degeneration [Recovered/Resolved]
  - Retinal toxicity [Recovered/Resolved]
  - Hypertrophy [Recovered/Resolved]
  - Maculopathy [Recovered/Resolved]
  - Visual acuity tests abnormal [Recovered/Resolved]
